FAERS Safety Report 8920995 (Version 2)
Quarter: 2012Q4

REPORT INFORMATION
  Report Type: 
  Country: NZ (occurrence: NZ)
  Receive Date: 20121122
  Receipt Date: 20121205
  Transmission Date: 20130627
  Serious: Yes (Other)
  Sender: FDA-Public Use
  Company Number: NZ-RANBAXY-2012RR-62167

PATIENT
  Age: 18 Year
  Sex: Female

DRUGS (2)
  1. QUINAPRIL [Suspect]
     Indication: HYPERTENSION
     Dosage: since childhood
     Route: 065
  2. NITROFURANTOIN [Concomitant]
     Indication: PROPHYLAXIS
     Dosage: UNK
     Route: 065

REACTIONS (3)
  - Oligohydramnios [Recovered/Resolved]
  - Exposure during pregnancy [Recovered/Resolved]
  - Maternal exposure before pregnancy [Recovered/Resolved]
